FAERS Safety Report 20102129 (Version 1)
Quarter: 2021Q4

REPORT INFORMATION
  Report Type: Spontaneous
  Country: US (occurrence: None)
  Receive Date: 20211123
  Receipt Date: 20211123
  Transmission Date: 20220304
  Serious: Yes (Hospitalization)
  Sender: FDA-Public Use
  Company Number: None

PATIENT
  Age: 38 Year
  Sex: Male
  Weight: 72.6 kg

DRUGS (7)
  1. CYTARABINE [Suspect]
     Active Substance: CYTARABINE
     Dates: end: 20211112
  2. SPRYCEL [Suspect]
     Active Substance: DASATINIB
     Dates: end: 20211118
  3. METHOTREXATE [Suspect]
     Active Substance: METHOTREXATE
     Dates: end: 20211110
  4. CYCLOPHOSPHAMIDE [Suspect]
     Active Substance: CYCLOPHOSPHAMIDE
     Dates: end: 20211019
  5. DOXORUBICIN HYDROCHLORIDE [Suspect]
     Active Substance: DOXORUBICIN HYDROCHLORIDE
     Dates: end: 20211020
  6. MESNA [Suspect]
     Active Substance: MESNA
     Dates: end: 20211019
  7. VINCRISTINE SULFATE [Suspect]
     Active Substance: VINCRISTINE SULFATE
     Dates: end: 20211019

REACTIONS (5)
  - Tachycardia [None]
  - Pyrexia [None]
  - White blood cell count decreased [None]
  - Haemoglobin decreased [None]
  - Platelet count decreased [None]

NARRATIVE: CASE EVENT DATE: 20211118
